FAERS Safety Report 10522661 (Version 1)
Quarter: 2014Q4

REPORT INFORMATION
  Report Type: Spontaneous
  Country: US (occurrence: None)
  Receive Date: 20141010
  Receipt Date: 20141010
  Transmission Date: 20150528
  Serious: Yes (Hospitalization)
  Sender: FDA-Public Use
  Company Number: 2014AP004987

PATIENT
  Age: 25 Year
  Sex: Female
  Weight: 54 kg

DRUGS (6)
  1. MORPHINE [Concomitant]
     Active Substance: MORPHINE
  2. ZOFRAN /00955301/ (ONDANSETRON) [Concomitant]
  3. HYDROXYUREA (HYDROXYCARBAMIDE) [Concomitant]
     Active Substance: HYDROXYUREA
  4. BENADRYL /00000402/ (DIPHENHYDRAMINE HYDROCHLORIDE) [Concomitant]
  5. FERRIPROX [Suspect]
     Active Substance: DEFERIPRONE
     Indication: SICKLE CELL ANAEMIA
     Route: 048
     Dates: start: 20131203
  6. AMBIEN [Concomitant]
     Active Substance: ZOLPIDEM TARTRATE

REACTIONS (4)
  - Gingivitis [None]
  - Decreased appetite [None]
  - Sickle cell anaemia with crisis [None]
  - Nasopharyngitis [None]

NARRATIVE: CASE EVENT DATE: 201408
